FAERS Safety Report 4683663-5 (Version None)
Quarter: 2005Q2

REPORT INFORMATION
  Report Type: 
  Country: None (occurrence: None)
  Receive Date: 20050602
  Receipt Date: 20050209
  Transmission Date: 20051028
  Serious: No
  Sender: FDA-Public Use
  Company Number: USA041286161

PATIENT
  Age: 37 Year
  Sex: Female
  Weight: 73 kg

DRUGS (2)
  1. CYMBALTA [Suspect]
     Indication: DEPRESSION
     Dosage: 60 MG DAY
     Dates: start: 20041019, end: 20041210
  2. YASMIN [Concomitant]

REACTIONS (4)
  - AGITATION [None]
  - CONSTIPATION [None]
  - MIGRAINE [None]
  - SUICIDAL IDEATION [None]
